FAERS Safety Report 21453046 (Version 3)
Quarter: 2022Q4

REPORT INFORMATION
  Report Type: Other
  Country: US (occurrence: None)
  Receive Date: 20221013
  Receipt Date: 20221214
  Transmission Date: 20230113
  Serious: Yes (Hospitalization, Other)
  Sender: FDA-Public Use
  Company Number: US-ROCHE-3195914

PATIENT
  Age: 66 Year
  Sex: Female

DRUGS (26)
  1. OCREVUS [Suspect]
     Active Substance: OCRELIZUMAB
     Indication: Product used for unknown indication
     Dosage: AS DIRECTED.
     Route: 065
  2. VENCLEXTA [Suspect]
     Active Substance: VENETOCLAX
     Indication: Chronic lymphocytic leukaemia
     Dosage: ONGOING: YES; TAKE 20MG BY MOUTH EVERY DAY ON DAYS 21 TO 28, THEN TAKE 50MG BY MOUTH EVERY DAY FOR 1
     Route: 048
     Dates: start: 20210806
  3. VENCLEXTA [Suspect]
     Active Substance: VENETOCLAX
     Indication: Neoplasm malignant
     Dosage: TAKE 20MG BY MOUTH EVERY DAY ON DAYS 21 TO 28
     Route: 048
  4. VENCLEXTA [Suspect]
     Active Substance: VENETOCLAX
     Dosage: TAKE 50MG BY MOUTH EVERY DAY FOR 1 WEEK(S)
     Route: 048
  5. VENCLEXTA [Suspect]
     Active Substance: VENETOCLAX
     Dosage: TAKE 100MG BY MOUTH EVERY DAY FOR 1 WEEK(S); THEN TAKE 200MG BY MOUTH EVERY DAY FOR 1 WEEK(S) TAKE W
     Route: 048
  6. VENCLEXTA [Suspect]
     Active Substance: VENETOCLAX
     Dosage: TAKE 20MG BY MOUTH EVERY DAY ON DAYS 21 TO 28, THEN TAKE 50MG BY?MOUTH EVERY DAY FOR 1 WEEK(S) THEN
     Route: 048
  7. GAZYVA [Suspect]
     Active Substance: OBINUTUZUMAB
     Indication: Product used for unknown indication
     Dosage: ONGOING: YES
     Route: 042
     Dates: start: 20210717
  8. BENADRYL [Concomitant]
     Active Substance: DIPHENHYDRAMINE HYDROCHLORIDE
     Route: 065
  9. COUMADIN [Concomitant]
     Active Substance: WARFARIN SODIUM
     Route: 048
  10. DESYREL [Concomitant]
     Active Substance: TRAZODONE HYDROCHLORIDE
     Route: 065
  11. KCL [Concomitant]
     Active Substance: POTASSIUM CHLORIDE
     Route: 065
  12. LANTUS [Concomitant]
     Active Substance: INSULIN GLARGINE
     Route: 065
  13. LASIX [Concomitant]
     Active Substance: FUROSEMIDE
     Route: 065
  14. LOVENOX [Concomitant]
     Active Substance: ENOXAPARIN SODIUM
     Route: 065
  15. PEPCID [Concomitant]
     Active Substance: FAMOTIDINE
     Route: 065
  16. PRAVACHOL [Concomitant]
     Active Substance: PRAVASTATIN SODIUM
     Route: 065
  17. SYMBICORT [Concomitant]
     Active Substance: BUDESONIDE\FORMOTEROL FUMARATE DIHYDRATE
     Route: 065
  18. TYLENOL [Concomitant]
     Active Substance: ACETAMINOPHEN
     Route: 065
  19. ZOFRAN [Concomitant]
     Active Substance: ONDANSETRON HYDROCHLORIDE
     Route: 065
  20. ALBUTEROL [Concomitant]
     Active Substance: ALBUTEROL
     Route: 065
  21. ALLOPURINOL [Concomitant]
     Active Substance: ALLOPURINOL
     Route: 065
  22. DILTIAZEM [Concomitant]
     Active Substance: DILTIAZEM
     Route: 065
  23. MELATONIN [Concomitant]
     Active Substance: MELATONIN
     Route: 065
  24. METOPROLOL [Concomitant]
     Active Substance: METOPROLOL
     Route: 065
  25. MORPHINE [Concomitant]
     Active Substance: MORPHINE
     Route: 065
  26. SERTRALINE [Concomitant]
     Active Substance: SERTRALINE HYDROCHLORIDE
     Route: 065

REACTIONS (2)
  - Atrial fibrillation [Not Recovered/Not Resolved]
  - Tumour lysis syndrome [Recovered/Resolved]

NARRATIVE: CASE EVENT DATE: 20210718
